FAERS Safety Report 20808338 (Version 1)
Quarter: 2022Q2

REPORT INFORMATION
  Report Type: Spontaneous
  Country: US (occurrence: None)
  Receive Date: 20220509
  Receipt Date: 20220509
  Transmission Date: 20220721
  Serious: Yes (Hospitalization)
  Sender: FDA-Public Use
  Company Number: None

PATIENT
  Age: 83 Year
  Sex: Male
  Weight: 80.74 kg

DRUGS (21)
  1. ABIRATERONE [Suspect]
     Active Substance: ABIRATERONE
     Indication: Prostate cancer
     Dosage: FREQUENCY : DAILY;?
     Route: 048
     Dates: start: 202203
  2. PREDNISONE [Suspect]
     Active Substance: PREDNISONE
     Dosage: FREQUENCY : TWICE A DAY;?
     Route: 048
     Dates: start: 202203
  3. ALBUTEROL [Concomitant]
     Active Substance: ALBUTEROL
  4. .ALPHA.-LIPOIC ACID [Concomitant]
     Active Substance: .ALPHA.-LIPOIC ACID
  5. AMLODIPINE [Concomitant]
     Active Substance: AMLODIPINE BESYLATE
  6. AZITHROMYCIN [Concomitant]
     Active Substance: AZITHROMYCIN
  7. ASPIRIN [Concomitant]
     Active Substance: ASPIRIN
  8. CEFUROXIME [Concomitant]
     Active Substance: CEFUROXIME
  9. VITAMINS [Concomitant]
     Active Substance: VITAMINS
  10. FAMOTIDINE [Concomitant]
     Active Substance: FAMOTIDINE
  11. FENOPHRNE [Concomitant]
  12. IRON [Concomitant]
     Active Substance: IRON
  13. FIRMAGON [Concomitant]
     Active Substance: DEGARELIX ACETATE
  14. HUMALOG [Concomitant]
     Active Substance: INSULIN LISPRO
  15. LISINOPRIL [Concomitant]
     Active Substance: LISINOPRIL
  16. NOVOLIN NOS [Concomitant]
     Active Substance: INSULIN HUMAN
  17. NOVOLOG [Concomitant]
     Active Substance: INSULIN ASPART
  18. SIMVASTATIN [Concomitant]
     Active Substance: SIMVASTATIN
  19. SYMBICORT [Concomitant]
     Active Substance: BUDESONIDE\FORMOTEROL FUMARATE DIHYDRATE
  20. METOPROLOL [Concomitant]
     Active Substance: METOPROLOL
  21. VITAMIN D3 [Concomitant]
     Active Substance: CHOLECALCIFEROL

REACTIONS (2)
  - Pneumonia [None]
  - Dehydration [None]

NARRATIVE: CASE EVENT DATE: 20220504
